FAERS Safety Report 17973882 (Version 1)
Quarter: 2020Q3

REPORT INFORMATION
  Report Type: Spontaneous
  Country: NL (occurrence: PL)
  Receive Date: 20200702
  Receipt Date: 20200702
  Transmission Date: 20201103
  Serious: Yes (Other)
  Sender: FDA-Public Use
  Company Number: PL-FRESENIUS KABI-FK202006299

PATIENT
  Age: 66 Year
  Sex: Male

DRUGS (4)
  1. FOLINIC ACID [Suspect]
     Active Substance: LEUCOVORIN
     Indication: RECTAL ADENOCARCINOMA
     Dosage: UNK
     Route: 065
     Dates: start: 20190320, end: 2020
  2. OXALIPLATIN (MANUFACTURER UNKNOWN) [Suspect]
     Active Substance: OXALIPLATIN
     Indication: RECTAL ADENOCARCINOMA
     Dosage: UNK
     Route: 065
     Dates: start: 20190320, end: 2020
  3. PANITUMUMAB [Suspect]
     Active Substance: PANITUMUMAB
     Indication: RECTAL ADENOCARCINOMA
     Dosage: 6 MILLIGRAM/KILOGRAM, Q2WK (EVERY 14 DAYS)
     Route: 042
     Dates: start: 20190320
  4. FLUOROURACIL. [Suspect]
     Active Substance: FLUOROURACIL
     Indication: RECTAL ADENOCARCINOMA
     Dosage: UNK
     Route: 065
     Dates: start: 20190320, end: 2020

REACTIONS (2)
  - Skin toxicity [Unknown]
  - Polyneuropathy [Unknown]

NARRATIVE: CASE EVENT DATE: 2019
